FAERS Safety Report 21531693 (Version 6)
Quarter: 2022Q4

REPORT INFORMATION
  Report Type: Spontaneous
  Country: US (occurrence: US)
  Receive Date: 20221031
  Receipt Date: 20221122
  Transmission Date: 20230112
  Serious: No
  Sender: FDA-Public Use
  Company Number: US-AMGEN-USASP2022185048

PATIENT
  Age: 68 Year
  Sex: Female
  Weight: 68.04 kg

DRUGS (1)
  1. NEULASTA [Suspect]
     Active Substance: PEGFILGRASTIM
     Indication: Product used for unknown indication
     Dosage: UNK
     Route: 065

REACTIONS (3)
  - Arthralgia [Unknown]
  - Incorrect disposal of product [Unknown]
  - Device malfunction [Unknown]

NARRATIVE: CASE EVENT DATE: 20221022
